FAERS Safety Report 9918710 (Version 1)
Quarter: 2014Q1

REPORT INFORMATION
  Report Type: Report from Study
  Country: US (occurrence: US)
  Receive Date: 20140224
  Receipt Date: 20140224
  Transmission Date: 20141002
  Serious: Yes (Death)
  Sender: FDA-Public Use
  Company Number: US-ROCHE-1354773

PATIENT
  Sex: Female

DRUGS (4)
  1. AVASTIN [Suspect]
     Indication: COLON CANCER
     Dosage: 5 MG/KG, 04/OCT/2011, RECEIVED AT SAME DOSE.
     Route: 042
     Dates: start: 20110913
  2. FLUOROURACIL [Concomitant]
     Route: 042
     Dates: start: 20110913
  3. FLUOROURACIL [Concomitant]
     Route: 042
     Dates: start: 20111004
  4. OXALIPLATIN [Concomitant]
     Route: 042
     Dates: start: 20110913

REACTIONS (1)
  - Death [Fatal]
